FAERS Safety Report 10100728 (Version 2)
Quarter: 2014Q2

REPORT INFORMATION
  Report Type: Spontaneous
  Country: CA (occurrence: CA)
  Receive Date: 20140423
  Receipt Date: 20140520
  Transmission Date: 20141212
  Serious: Yes (Death, Other)
  Sender: FDA-Public Use
  Company Number: PHHY2014CA046513

PATIENT
  Sex: Female

DRUGS (2)
  1. HALOPERIDOL DECANOATE SANDOZ [Suspect]
     Dosage: 100 MG/ML, UNK
  2. HYDROMORPHONE SANDOZ [Suspect]

REACTIONS (3)
  - Death [Fatal]
  - Extrapyramidal disorder [Unknown]
  - Wrong drug administered [Unknown]
